FAERS Safety Report 9555068 (Version 1)
Quarter: 2013Q3

REPORT INFORMATION
  Report Type: Spontaneous
  Country: GB (occurrence: None)
  Receive Date: 20130906
  Receipt Date: 20130906
  Transmission Date: 20140515
  Serious: Yes (Hospitalization)
  Sender: FDA-Public Use
  Company Number: E2B_00000706

PATIENT
  Sex: Female

DRUGS (5)
  1. SIMVASTATIN [Suspect]
     Indication: HYPERCHOLESTEROLAEMIA
     Dosage: UNKNOWN (40 MG, UNKNOWN), UNKNOWN
  2. AMLODIPINE [Suspect]
     Indication: HYPERTENSION
     Dosage: UNKNOWN (10 MG, UNKNOWN), UNKNOWN
  3. RAMIPRIL [Suspect]
     Indication: HYPERTENSION
     Dosage: UNKNOWN, (10 MG, UNKNOWN), UNKNOWN
  4. ATORVASTATIN [Suspect]
     Indication: HYPERTENSION
     Dosage: UNKNOWN (10 MG, UNKNOWN), UNKNOWN
  5. BENDROFLUMETHIAZOLE [Concomitant]

REACTIONS (21)
  - Swollen tongue [None]
  - Dizziness [None]
  - Malaise [None]
  - Feeling hot [None]
  - Paraesthesia [None]
  - Local swelling [None]
  - Skin discolouration [None]
  - Back pain [None]
  - Emotional distress [None]
  - Muscle twitching [None]
  - Pain in extremity [None]
  - Blood pressure increased [None]
  - Cellulitis [None]
  - Hypersomnia [None]
  - Heart rate increased [None]
  - Hypoaesthesia [None]
  - Hypersensitivity [None]
  - Drug interaction [None]
  - Muscle tightness [None]
  - Vomiting [None]
  - Malaise [None]
